FAERS Safety Report 15655607 (Version 3)
Quarter: 2019Q1

REPORT INFORMATION
  Report Type: Spontaneous
  Country: CA (occurrence: CA)
  Receive Date: 20181126
  Receipt Date: 20190214
  Transmission Date: 20190417
  Serious: Yes (Hospitalization, Other)
  Sender: FDA-Public Use
  Company Number: CA-CELLTRION INC.-2018CA022651

PATIENT

DRUGS (6)
  1. INFLECTRA [Suspect]
     Active Substance: INFLIXIMAB-DYYB
     Indication: RHEUMATOID ARTHRITIS
     Dosage: 10 MG/KG, ON WEEK 0 THEN 5 MG/KG WEEK 2, 6 AND THEN MAINTENANCE EVERY 8 WEEKS)
     Route: 042
     Dates: start: 20180918
  2. INFLECTRA [Suspect]
     Active Substance: INFLIXIMAB-DYYB
     Indication: CROHN^S DISEASE
     Dosage: 10 MG/KG, ON WEEK 0 THEN 5 MG/KG WEEK 2, 6 AND THEN MAINTENANCE EVERY 8 WEEKS)
     Route: 042
     Dates: start: 20181002
  3. INFLECTRA [Suspect]
     Active Substance: INFLIXIMAB-DYYB
     Dosage: 10 MG/KG, ON WEEK 0 THEN 5 MG/KG WEEK 2, 6 AND THEN MAINTENANCE EVERY 8 WEEKS)
     Route: 042
     Dates: start: 20181026
  4. AZATHIOPRINE. [Concomitant]
     Active Substance: AZATHIOPRINE
     Dosage: 100 MG
     Route: 023
     Dates: start: 20180910
  5. PREDNISONE. [Concomitant]
     Active Substance: PREDNISONE
     Dosage: 40MG, ONCE A DAY (DIE) AND WAS INEFFICIENT
     Dates: start: 1997
  6. INFLECTRA [Suspect]
     Active Substance: INFLIXIMAB-DYYB
     Dosage: 10 MG/KG, ON WEEK 0 THEN 5 MG/KG WEEK 2, 6 AND THEN MAINTENANCE EVERY 8 WEEKS)
     Route: 042
     Dates: start: 20181113

REACTIONS (6)
  - Blood pressure fluctuation [Unknown]
  - Infection [Unknown]
  - Product use issue [Unknown]
  - Diabetes mellitus [Unknown]
  - Cyst [Unknown]
  - Anal abscess [Unknown]

NARRATIVE: CASE EVENT DATE: 20181002
